FAERS Safety Report 5587280-4 (Version None)
Quarter: 2008Q1

REPORT INFORMATION
  Report Type: 
  Country: None (occurrence: None)
  Receive Date: 20080107
  Receipt Date: 20071221
  Transmission Date: 20080703
  Serious: Yes (Hospitalization)
  Sender: FDA-Public Use
  Company Number: 2008US000027

PATIENT
  Age: 81 Year
  Sex: Male

DRUGS (6)
  1. AMBISOME [Suspect]
     Indication: FUNGAL INFECTION
     Dosage: 125 MG, UID/QD, IV NOS
     Route: 042
     Dates: start: 20071017, end: 20071019
  2. HUMULIN R [Concomitant]
  3. GASTER [Concomitant]
  4. LAC B (LACTOBACILLUS BIFIDUS, LYOPHILIZED) [Concomitant]
  5. VOLTAREN [Concomitant]
  6. ANHIBA [Concomitant]

REACTIONS (2)
  - ANAEMIA [None]
  - DISSEMINATED INTRAVASCULAR COAGULATION [None]
